FAERS Safety Report 23522853 (Version 3)
Quarter: 2024Q3

REPORT INFORMATION
  Report Type: Spontaneous
  Country: CZ (occurrence: CZ)
  Receive Date: 20240214
  Receipt Date: 20240715
  Transmission Date: 20241017
  Serious: Yes (Other)
  Sender: MYLAN
  Company Number: CZ-SUN PHARMACEUTICAL INDUSTRIES LTD-2024R1-429574

PATIENT
  Age: 59 Year
  Sex: Male

DRUGS (18)
  1. OXALIPLATIN [Suspect]
     Active Substance: OXALIPLATIN
     Indication: Immunochemotherapy
     Dosage: FOUR CYCLES OF R-DHAOX AT REDUCED DOSES DUE TO AGE
     Route: 065
     Dates: start: 202205
  2. OXALIPLATIN [Suspect]
     Active Substance: OXALIPLATIN
     Indication: Follicular lymphoma
  3. LENALIDOMIDE [Suspect]
     Active Substance: LENALIDOMIDE
     Indication: Follicular lymphoma
     Dosage: CYCLICAL, TERMINATED AFTER THE FIRST CYCLE
     Route: 065
     Dates: start: 202101
  4. LENALIDOMIDE [Suspect]
     Active Substance: LENALIDOMIDE
     Indication: Follicular lymphoma stage IV
  5. CYTARABINE [Suspect]
     Active Substance: CYTARABINE
     Indication: Immunochemotherapy
     Dosage: FOUR CYCLES OF R-DHAOX AT REDUCED DOSES DUE TO AGE
     Route: 065
     Dates: start: 202205
  6. CYTARABINE [Suspect]
     Active Substance: CYTARABINE
     Indication: Follicular lymphoma
  7. DEXAMETHASONE [Suspect]
     Active Substance: DEXAMETHASONE
     Indication: Immunochemotherapy
     Dosage: FOUR CYCLES OF R-DHAOX AT REDUCED DOSES DUE TO AGE
     Route: 065
     Dates: start: 202205
  8. DEXAMETHASONE [Suspect]
     Active Substance: DEXAMETHASONE
     Indication: Follicular lymphoma
  9. BENDAMUSTINE [Suspect]
     Active Substance: BENDAMUSTINE
     Indication: Follicular lymphoma
     Dosage: 90 MG/SQ. METER CYCLICAL, SIX CYCLES OF COMBINED RITUMIXAB-BENDAMUSTINE AS SECOND-LINE TREATMENT
     Route: 065
     Dates: start: 201602
  10. OBINUTUZUMAB [Suspect]
     Active Substance: OBINUTUZUMAB
     Indication: Follicular lymphoma
     Dosage: UNK CYCLICAL
     Route: 065
     Dates: start: 201907
  11. CYCLOPHOSPHAMIDE\DOXORUBICIN\PREDNISONE\VINCRISTINE [Suspect]
     Active Substance: CYCLOPHOSPHAMIDE\DOXORUBICIN\PREDNISONE\VINCRISTINE
     Indication: Follicular lymphoma
     Dosage: UNK SIX CYCLES OF R-CHOP
     Route: 065
  12. RITUXIMAB [Concomitant]
     Active Substance: RITUXIMAB
     Indication: Immunochemotherapy
     Dosage: CYCLICAL FOUR CYCLES OF R-DHAOX AT REDUCED DOSES
     Route: 065
     Dates: start: 202205
  13. RITUXIMAB [Concomitant]
     Active Substance: RITUXIMAB
     Indication: Follicular lymphoma
     Dosage: TREATED WITH COMBINATION LENALIDOMIDE-RITUXIMAB IN THE FOURTH LINE OF TREATMENT
     Route: 065
  14. RITUXIMAB [Concomitant]
     Active Substance: RITUXIMAB
     Indication: Follicular lymphoma stage IV
     Dosage: 90 MG/SQ. METER CYCLICAL, SIX CYCLES OF COMBINED RITUMIXAB-BENDAMUSTINE AS SECOND-LINE TREATMENT
     Route: 065
     Dates: start: 201602
  15. RITUXIMAB [Concomitant]
     Active Substance: RITUXIMAB
     Dosage: SIX CYCLES OF R-CHOP STANDARD COMBINATION CHEMOIMMUNOTHERAPY
     Route: 065
  16. RITUXIMAB [Concomitant]
     Active Substance: RITUXIMAB
     Dosage: UNK
     Route: 065
  17. RITUXIMAB [Concomitant]
     Active Substance: RITUXIMAB
     Dosage: RITUXIMAB MAINTENANCE THERAPY
     Route: 065
     Dates: start: 201308
  18. RITUXIMAB [Concomitant]
     Active Substance: RITUXIMAB
     Dosage: UNK, AFTER THE FIRST CYCLE
     Route: 065
     Dates: start: 202101

REACTIONS (3)
  - Neoplasm [Recovering/Resolving]
  - Therapeutic response decreased [Unknown]
  - Rash pruritic [Unknown]
